FAERS Safety Report 13029119 (Version 1)
Quarter: 2016Q4

REPORT INFORMATION
  Report Type: Spontaneous
  Country: US (occurrence: US)
  Receive Date: 20161214
  Receipt Date: 20161214
  Transmission Date: 20170207
  Serious: Yes (Life-Threatening, Hospitalization)
  Sender: FDA-Public Use
  Company Number: None

PATIENT
  Age: 55 Year
  Sex: Female
  Weight: 69.75 kg

DRUGS (10)
  1. ASPIRIN. [Concomitant]
     Active Substance: ASPIRIN
  2. METOPROLOL. [Concomitant]
     Active Substance: METOPROLOL
  3. FEXOFENADINE [Concomitant]
     Active Substance: FEXOFENADINE\FEXOFENADINE HYDROCHLORIDE
  4. CALCIUM [Concomitant]
     Active Substance: CALCIUM
  5. PHAZYME [Concomitant]
     Active Substance: DIMETHICONE 410
  6. GINGER ROOT [Concomitant]
     Active Substance: GINGER
  7. VITAMIN D [Concomitant]
     Active Substance: CHOLECALCIFEROL
  8. NITROFURANTOIN. [Suspect]
     Active Substance: NITROFURANTOIN
     Indication: URINARY TRACT INFECTION
     Dosage: ?          QUANTITY:1 CAPSULE(S);?
     Route: 048
     Dates: start: 20161209, end: 20161211
  9. LEVOTHYROXINE. [Concomitant]
     Active Substance: LEVOTHYROXINE
  10. FLONASE [Concomitant]
     Active Substance: FLUTICASONE PROPIONATE

REACTIONS (19)
  - Decreased appetite [None]
  - Oral pain [None]
  - Glossodynia [None]
  - Chills [None]
  - Bone pain [None]
  - Heart rate increased [None]
  - Rash generalised [None]
  - Pain in extremity [None]
  - Body temperature increased [None]
  - Myalgia [None]
  - Nausea [None]
  - White blood cell count increased [None]
  - Pyrexia [None]
  - Dehydration [None]
  - Protein urine present [None]
  - Swelling face [None]
  - Chest pain [None]
  - Peripheral swelling [None]
  - Cough [None]

NARRATIVE: CASE EVENT DATE: 20161209
